FAERS Safety Report 19084337 (Version 2)
Quarter: 2021Q2

REPORT INFORMATION
  Report Type: Spontaneous
  Country: JP (occurrence: JP)
  Receive Date: 20210401
  Receipt Date: 20210409
  Transmission Date: 20210717
  Serious: Yes (Hospitalization, Other)
  Sender: FDA-Public Use
  Company Number: JP-ASTRAZENECA-2020SE76640

PATIENT
  Age: 27005 Day
  Sex: Female
  Weight: 45 kg

DRUGS (4)
  1. NEUROTROPIN [Concomitant]
     Active Substance: NEUROTROPIN
     Indication: LUMBAR SPINAL STENOSIS
     Route: 048
  2. RELVAR [Concomitant]
     Active Substance: FLUTICASONE FUROATE\VILANTEROL TRIFENATATE
     Indication: ASTHMA
     Route: 055
  3. IMFINZI [Suspect]
     Active Substance: DURVALUMAB
     Indication: NON-SMALL CELL LUNG CANCER
     Route: 042
     Dates: start: 20200226, end: 20200609
  4. LYRICA [Concomitant]
     Active Substance: PREGABALIN
     Indication: LUMBAR SPINAL STENOSIS
     Route: 048

REACTIONS (2)
  - Non-small cell lung cancer recurrent [Recovered/Resolved]
  - Radiation pneumonitis [Recovering/Resolving]

NARRATIVE: CASE EVENT DATE: 20200609
